FAERS Safety Report 10598641 (Version 1)
Quarter: 2014Q4

REPORT INFORMATION
  Report Type: Spontaneous
  Country: US (occurrence: US)
  Receive Date: 20141121
  Receipt Date: 20141121
  Transmission Date: 20150529
  Serious: Yes (Other)
  Sender: FDA-Public Use
  Company Number: US-ABBVIE-14P-163-1309798-00

PATIENT

DRUGS (1)
  1. HUMIRA [Suspect]
     Active Substance: ADALIMUMAB
     Indication: PRODUCT USED FOR UNKNOWN INDICATION
     Dosage: 4 INJECTIONS
     Route: 065

REACTIONS (5)
  - Injection site pain [Unknown]
  - Hyperhidrosis [Unknown]
  - Inappropriate affect [Unknown]
  - C-reactive protein increased [Unknown]
  - Condition aggravated [Unknown]
